FAERS Safety Report 7905039-7 (Version None)
Quarter: 2011Q4

REPORT INFORMATION
  Report Type: 
  Country: None (occurrence: None)
  Receive Date: 20111109
  Receipt Date: 20111103
  Transmission Date: 20120403
  Serious: Yes (Other)
  Sender: FDA-Public Use
  Company Number: PHHY2011BR097579

PATIENT
  Sex: Female
  Weight: 65 kg

DRUGS (1)
  1. DIOVAN [Suspect]
     Dosage: 80 MG,(ONE TABLET IN THE MORNING AND ONE TABLET AT NIGHT)
     Route: 048

REACTIONS (2)
  - INSOMNIA [None]
  - EMOTIONAL DISORDER [None]
